FAERS Safety Report 24740570 (Version 1)
Quarter: 2024Q4

REPORT INFORMATION
  Report Type: Report from Study
  Country: JP (occurrence: JP)
  Receive Date: 20241217
  Receipt Date: 20241217
  Transmission Date: 20250115
  Serious: Yes (Hospitalization)
  Sender: ABBVIE
  Company Number: JP-ABBVIE-5901327

PATIENT
  Age: 54 Year
  Sex: Female
  Weight: 39 kg

DRUGS (20)
  1. FOSCARBIDOPA\FOSLEVODOPA [Suspect]
     Active Substance: FOSCARBIDOPA\FOSLEVODOPA
     Indication: Parkinson^s disease
     Dosage: STANDARD: 0.20 ML/H, DURING NIGHT: 0.18 ML/H, LAST DOSE ADMINISTERED: JUN 2024
     Route: 058
     Dates: start: 20240603
  2. FOSCARBIDOPA\FOSLEVODOPA [Suspect]
     Active Substance: FOSCARBIDOPA\FOSLEVODOPA
     Dosage: STANDARD: 0.21 ML/H, DURING NIGHT: 0.18 ML/H, LAST DOSE ADMINISTERED: MAY 2024
     Route: 058
     Dates: start: 20240514
  3. FOSCARBIDOPA\FOSLEVODOPA [Suspect]
     Active Substance: FOSCARBIDOPA\FOSLEVODOPA
     Dosage: STANDARD: 0.24 ML/H, DURING NIGHT: 0.15 ML/H, LAST DOSE ADMINISTERED: 2024
     Route: 058
     Dates: start: 20240531
  4. FOSCARBIDOPA\FOSLEVODOPA [Suspect]
     Active Substance: FOSCARBIDOPA\FOSLEVODOPA
     Dosage: STANDARD: 0.29 ML/H, DURING NIGHT: 0.18 ML/H, LAST DOSE ADMINISTERED: MAY 2024
     Route: 058
     Dates: start: 20240516
  5. FOSCARBIDOPA\FOSLEVODOPA [Suspect]
     Active Substance: FOSCARBIDOPA\FOSLEVODOPA
     Dosage: STANDARD: 0.29 ML/H, LAST DOSE ADMINISTERED: MAY 2024
     Route: 058
     Dates: start: 20240520
  6. FOSCARBIDOPA\FOSLEVODOPA [Suspect]
     Active Substance: FOSCARBIDOPA\FOSLEVODOPA
     Dosage: STANDARD: 0.23 ML/H, DURING NIGHT: 0.18 ML/H, LAST DOSE ADMINISTERED: JUN 2024
     Route: 058
     Dates: start: 20240603
  7. FOSCARBIDOPA\FOSLEVODOPA [Suspect]
     Active Substance: FOSCARBIDOPA\FOSLEVODOPA
     Dosage: STANDARD: 0.28 ML/H, DURING NIGHT: 0.15 ML/H, LAST DOSE ADMINISTERED: MAY 2024
     Route: 058
     Dates: start: 20240513
  8. FOSCARBIDOPA\FOSLEVODOPA [Suspect]
     Active Substance: FOSCARBIDOPA\FOSLEVODOPA
     Dosage: STANDARD: 0.27 ML/H, LAST DOSE ADMINISTERED: MAY 2024
     Route: 058
     Dates: start: 20240527
  9. FOSCARBIDOPA\FOSLEVODOPA [Suspect]
     Active Substance: FOSCARBIDOPA\FOSLEVODOPA
     Dosage: STANDARD: 0.17 ML/H, LAST DOSE ADMINISTERED: JUN 2024
     Route: 058
     Dates: start: 20240606
  10. FOSCARBIDOPA\FOSLEVODOPA [Suspect]
     Active Substance: FOSCARBIDOPA\FOSLEVODOPA
     Dosage: STANDARD: 0.28 ML/H, DURING NIGHT: 0.18 ML/H, LAST DOSE ADMINISTERED: MAY 2024
     Route: 058
     Dates: start: 20240515
  11. FOSCARBIDOPA\FOSLEVODOPA [Suspect]
     Active Substance: FOSCARBIDOPA\FOSLEVODOPA
     Dosage: STANDARD: 0.16 ML/H, DURING NIGHT: 0.15 ML/H
     Route: 058
     Dates: start: 20240607, end: 20240610
  12. FOSCARBIDOPA\FOSLEVODOPA [Suspect]
     Active Substance: FOSCARBIDOPA\FOSLEVODOPA
     Dosage: STANDARD: 0.25 ML/H, DURING NIGHT: 0.15 ML/H, LAST DOSE ADMINISTERED: MAY 2024
     Route: 058
     Dates: start: 20240530
  13. LEMBOREXANT [Concomitant]
     Active Substance: LEMBOREXANT
     Indication: Product used for unknown indication
     Route: 048
  14. METHYLCOBALAMIN [Concomitant]
     Active Substance: METHYLCOBALAMIN
     Indication: Vitamin B12 deficiency
     Route: 048
  15. SENNOSIDES [Concomitant]
     Active Substance: SENNOSIDES
     Indication: Product used for unknown indication
     Route: 048
  16. Lactomin, amylolytic bacillus and clostridium butyricum [Concomitant]
     Indication: Product used for unknown indication
     Route: 048
  17. ARTANE [Suspect]
     Active Substance: TRIHEXYPHENIDYL HYDROCHLORIDE
     Indication: Parkinson^s disease
     Dosage: TIME INTERVAL: 0.33333333 DAYS
     Route: 048
     Dates: start: 20240525, end: 20240526
  18. ARTANE [Suspect]
     Active Substance: TRIHEXYPHENIDYL HYDROCHLORIDE
     Indication: Parkinson^s disease
     Route: 048
     Dates: start: 20240527
  19. ALINAMIN F [Concomitant]
     Active Substance: FURSULTIAMINE HYDROCHLORIDE
     Indication: Product used for unknown indication
     Route: 048
  20. CLOTIAZEPAM [Concomitant]
     Active Substance: CLOTIAZEPAM
     Indication: Product used for unknown indication
     Route: 048

REACTIONS (3)
  - Dystonia [Not Recovered/Not Resolved]
  - Nausea [Not Recovered/Not Resolved]
  - Drug ineffective [Unknown]

NARRATIVE: CASE EVENT DATE: 20240101
